FAERS Safety Report 20050045 (Version 1)
Quarter: 2021Q4

REPORT INFORMATION
  Report Type: Spontaneous
  Country: US (occurrence: None)
  Receive Date: 20211109
  Receipt Date: 20211109
  Transmission Date: 20220303
  Serious: Yes (Hospitalization)
  Sender: FDA-Public Use
  Company Number: None

PATIENT
  Sex: Male
  Weight: 84.8 kg

DRUGS (1)
  1. NELFINAVIR [Suspect]
     Active Substance: NELFINAVIR
     Dates: end: 20211026

REACTIONS (4)
  - Abscess limb [None]
  - Diarrhoea [None]
  - Wound infection staphylococcal [None]
  - Lymphadenopathy [None]

NARRATIVE: CASE EVENT DATE: 20211026
